FAERS Safety Report 23667401 (Version 7)
Quarter: 2024Q2

REPORT INFORMATION
  Report Type: Spontaneous
  Country: FR (occurrence: FR)
  Receive Date: 20240325
  Receipt Date: 20240624
  Transmission Date: 20240716
  Serious: Yes (Other)
  Sender: FDA-Public Use
  Company Number: FR-VIIV HEALTHCARE LIMITED-FR2023EME134789

PATIENT
  Age: 52 Year
  Sex: Male

DRUGS (2)
  1. RILPIVIRINE [Suspect]
     Active Substance: RILPIVIRINE
     Indication: HIV infection
     Dosage: 1 DF, 1 DOSE OF EACH
     Route: 030
     Dates: start: 20230914
  2. CABOTEGRAVIR [Suspect]
     Active Substance: CABOTEGRAVIR
     Indication: HIV infection
     Dosage: 1 DF, 1 DOSE OF EACH
     Route: 030
     Dates: start: 20230914

REACTIONS (8)
  - Major depression [Unknown]
  - Injection site pain [Not Recovered/Not Resolved]
  - Mental disorder [Unknown]
  - Irritability [Unknown]
  - Depressed mood [Unknown]
  - Emotional poverty [Unknown]
  - Injection site induration [Not Recovered/Not Resolved]
  - Injection site mass [Not Recovered/Not Resolved]

NARRATIVE: CASE EVENT DATE: 20230914
